FAERS Safety Report 5322200-9 (Version None)
Quarter: 2007Q2

REPORT INFORMATION
  Report Type: 
  Country: None (occurrence: None)
  Receive Date: 20070511
  Receipt Date: 20070430
  Transmission Date: 20071010
  Serious: Yes (Other)
  Sender: FDA-Public Use
  Company Number: US-ROCHE-473405

PATIENT
  Age: 22 Year
  Sex: Female
  Weight: 68 kg

DRUGS (4)
  1. ACCUTANE [Suspect]
     Dosage: START DATE REPORTED AS LATE 2000, AND STOP DATE AS EARLY 2001
     Route: 065
     Dates: start: 20001001, end: 20010301
  2. ACCUTANE [Suspect]
     Dosage: STOP DATE REPORTED AS EARLY 2003
     Route: 065
     Dates: start: 20021201, end: 20030301
  3. ORTHO TRI-CYCLEN [Concomitant]
     Dosage: REPORTED AS: ORTHO TRI-CYCLIN.
  4. MOTRIN [Concomitant]

REACTIONS (20)
  - ABDOMINAL PAIN [None]
  - ABSCESS [None]
  - ANAEMIA [None]
  - BACK INJURY [None]
  - COLITIS [None]
  - COLITIS ULCERATIVE [None]
  - CROHN'S DISEASE [None]
  - DEPRESSION [None]
  - DIARRHOEA [None]
  - DIVERTICULITIS [None]
  - HYPOKALAEMIA [None]
  - INFLAMMATORY BOWEL DISEASE [None]
  - INTESTINAL HAEMORRHAGE [None]
  - INTESTINAL OBSTRUCTION [None]
  - INTESTINAL STENOSIS [None]
  - NEPHROLITHIASIS [None]
  - RECTAL HAEMORRHAGE [None]
  - ROAD TRAFFIC ACCIDENT [None]
  - SKIN FISSURES [None]
  - SLEEP DISORDER [None]
